FAERS Safety Report 14415190 (Version 6)
Quarter: 2019Q1

REPORT INFORMATION
  Report Type: Spontaneous
  Country: FR (occurrence: FR)
  Receive Date: 20180121
  Receipt Date: 20190325
  Transmission Date: 20190417
  Serious: Yes (Other)
  Sender: FDA-Public Use
  Company Number: FR-CONCORDIA PHARMACEUTICALS INC.-GSH201801-000253

PATIENT
  Age: 72 Year
  Sex: Male
  Weight: 90 kg

DRUGS (13)
  1. COAPROVEL [Concomitant]
     Active Substance: HYDROCHLOROTHIAZIDE\IRBESARTAN
  2. ROSUVASTATINE [Concomitant]
     Active Substance: ROSUVASTATIN
  3. HYDROCHLOROTHIAZIDE. [Concomitant]
     Active Substance: HYDROCHLOROTHIAZIDE
  4. KARDEGIC [Concomitant]
     Active Substance: ASPIRIN DL-LYSINE
  5. VENTOLINE [Concomitant]
     Active Substance: ALBUTEROL
  6. SALBUTAMOL [Concomitant]
     Active Substance: ALBUTEROL
  7. LANSOPRAZOLE. [Concomitant]
     Active Substance: LANSOPRAZOLE
  8. PLAQUENIL [Suspect]
     Active Substance: HYDROXYCHLOROQUINE SULFATE
     Indication: CHRONIC CUTANEOUS LUPUS ERYTHEMATOSUS
     Dosage: 1 TABLET PER DAY (1 DF, EVERY MORNING),
     Route: 048
     Dates: start: 2015, end: 201712
  9. LANZOR [Concomitant]
     Active Substance: LANSOPRAZOLE
  10. BISOPROLOL [Concomitant]
     Active Substance: BISOPROLOL
  11. ROSUVASTATINE [Concomitant]
     Active Substance: ROSUVASTATIN
  12. SERETIDE [Concomitant]
     Active Substance: FLUTICASONE PROPIONATE\SALMETEROL XINAFOATE
  13. IRBESARTAN. [Concomitant]
     Active Substance: IRBESARTAN

REACTIONS (4)
  - Eye burns [Unknown]
  - Visual field defect [Not Recovered/Not Resolved]
  - Visual impairment [Unknown]
  - Blindness [Not Recovered/Not Resolved]

NARRATIVE: CASE EVENT DATE: 20170928
